FAERS Safety Report 24049055 (Version 1)
Quarter: 2024Q3

REPORT INFORMATION
  Report Type: Spontaneous
  Country: US (occurrence: US)
  Receive Date: 20240704
  Receipt Date: 20240704
  Transmission Date: 20241016
  Serious: No
  Sender: APOTEX
  Company Number: US-APOTEX-2024AP007628

PATIENT

DRUGS (2)
  1. GEMCITABINE [Suspect]
     Active Substance: GEMCITABINE
     Indication: Adenocarcinoma pancreas
     Dosage: 1000 MILLIGRAM/SQ. METER ON DAYS 1, 8, AND 15 OF EVERY 28-DAY CYCLE
     Route: 065
  2. PACLITAXEL [Suspect]
     Active Substance: PACLITAXEL
     Indication: Adenocarcinoma pancreas
     Dosage: 125 MILLIGRAM/SQ. METER ON DAYS 1, 8, AND 15 OF EVERY 28-DAY CYCLE
     Route: 065

REACTIONS (1)
  - Drug intolerance [Unknown]
